FAERS Safety Report 24188314 (Version 1)
Quarter: 2024Q3

REPORT INFORMATION
  Report Type: Spontaneous
  Country: US (occurrence: US)
  Receive Date: 20240808
  Receipt Date: 20240808
  Transmission Date: 20241017
  Serious: No
  Sender: OTSUKA
  Company Number: US-OTSUKA-2023_019529

PATIENT
  Sex: Female

DRUGS (2)
  1. ABILIFY MAINTENA [Suspect]
     Active Substance: ARIPIPRAZOLE
     Indication: Product used for unknown indication
     Dosage: UNK
     Route: 065
  2. ABILIFY [Suspect]
     Active Substance: ARIPIPRAZOLE
     Indication: Product used for unknown indication
     Dosage: UNK
     Route: 048

REACTIONS (8)
  - Mania [Not Recovered/Not Resolved]
  - Peripheral swelling [Unknown]
  - Erythema [Unknown]
  - Obesity [Unknown]
  - Psychotic disorder [Not Recovered/Not Resolved]
  - Gait disturbance [Unknown]
  - Product dose omission issue [Unknown]
  - Therapy non-responder [Unknown]
